FAERS Safety Report 5709840-X (Version None)
Quarter: 2008Q2

REPORT INFORMATION
  Report Type: 
  Country: None (occurrence: None)
  Receive Date: 20080418
  Receipt Date: 20070309
  Transmission Date: 20081010
  Serious: No
  Sender: FDA-Public Use
  Company Number: US-ASTRAZENECA-2007UW04614

PATIENT
  Age: 49 Year
  Sex: Male
  Weight: 73.5 kg

DRUGS (6)
  1. TOPROL-XL [Suspect]
     Indication: CORONARY ARTERIAL STENT INSERTION
     Route: 048
  2. LIPITOR [Concomitant]
  3. ACETYLSALICYLIC ACID SRT [Concomitant]
  4. INSULIN [Concomitant]
  5. NOVALOG INSULIN [Concomitant]
  6. HUMALIN [Concomitant]

REACTIONS (1)
  - BLOOD POTASSIUM INCREASED [None]
